FAERS Safety Report 14411199 (Version 1)
Quarter: 2018Q1

REPORT INFORMATION
  Report Type: Spontaneous
  Country: US (occurrence: US)
  Receive Date: 20180117
  Receipt Date: 20180117
  Transmission Date: 20180509
  Serious: Yes (Hospitalization)
  Sender: FDA-Public Use
  Company Number: None

PATIENT
  Age: 47 Year
  Sex: Female

DRUGS (10)
  1. BENICAR [Concomitant]
     Active Substance: OLMESARTAN MEDOXOMIL
  2. MICROGEST [Concomitant]
  3. MULTI VIT [Concomitant]
  4. NIACIN. [Concomitant]
     Active Substance: NIACIN
  5. TYL [Concomitant]
  6. OLMESA [Concomitant]
  7. AMLOD [Concomitant]
     Active Substance: AMLODIPINE BESYLATE
  8. CENTR [Concomitant]
  9. CALC [Concomitant]
  10. REBIF REBIDOSE [Suspect]
     Active Substance: INTERFERON BETA-1A
     Indication: MULTIPLE SCLEROSIS
     Route: 058
     Dates: start: 201106

REACTIONS (2)
  - Therapy cessation [None]
  - Hypoaesthesia [None]

NARRATIVE: CASE EVENT DATE: 20180112
